FAERS Safety Report 7557649-7 (Version None)
Quarter: 2011Q2

REPORT INFORMATION
  Report Type: 
  Country: None (occurrence: None)
  Receive Date: 20110620
  Receipt Date: 20110610
  Transmission Date: 20111010
  Serious: Yes (Death, Other)
  Sender: FDA-Public Use
  Company Number: JP-AMGEN-JPNCT2011031187

PATIENT
  Age: 76 Year
  Sex: Male
  Weight: 53 kg

DRUGS (6)
  1. PANITUMUMAB [Suspect]
     Indication: COLORECTAL CANCER
     Dosage: 6 MG/KG, Q2WK
     Route: 041
     Dates: start: 20100817, end: 20101006
  2. LENDORMIN [Concomitant]
     Dosage: UNK
     Route: 048
  3. MAGNESIUM OXIDE [Concomitant]
     Dosage: UNK
     Route: 048
  4. LANSOPRAZOLE [Concomitant]
     Dosage: UNK
     Route: 048
  5. OXYCONTIN [Concomitant]
     Dosage: UNK
     Route: 048
  6. ACETAMINOPHEN [Concomitant]
     Dosage: UNK
     Route: 048

REACTIONS (2)
  - DEATH [None]
  - DERMATITIS ACNEIFORM [None]
